FAERS Safety Report 4956070-5 (Version None)
Quarter: 2006Q1

REPORT INFORMATION
  Report Type: 
  Country: None (occurrence: None)
  Receive Date: 20060328
  Receipt Date: 20050308
  Transmission Date: 20060701
  Serious: Yes (Hospitalization)
  Sender: FDA-Public Use
  Company Number: US-MERCK-0503USA03920

PATIENT
  Age: 67 Year
  Sex: Male
  Weight: 102 kg

DRUGS (6)
  1. VIOXX [Suspect]
     Indication: ARTHRALGIA
     Route: 048
     Dates: start: 20010127, end: 20040926
  2. VIOXX [Suspect]
     Route: 048
     Dates: end: 20010126
  3. ASPIRIN [Concomitant]
     Route: 065
     Dates: start: 19950101
  4. VITAMINS (UNSPECIFIED) [Concomitant]
     Route: 065
  5. GLUCOSAMINE [Concomitant]
     Route: 065
  6. CHONDROITIN [Concomitant]
     Route: 065

REACTIONS (6)
  - CORONARY ARTERY DISEASE [None]
  - HYPERLIPIDAEMIA [None]
  - HYPOTENSION [None]
  - INJURY [None]
  - MYOCARDIAL INFARCTION [None]
  - OVERWEIGHT [None]
